FAERS Safety Report 8758537 (Version 1)
Quarter: 2012Q4

REPORT INFORMATION
  Report Type: 
  Country: US (occurrence: US)
  Receive Date: 20120829
  Receipt Date: 20120829
  Transmission Date: 20130627
  Serious: No
  Sender: FDA-Public Use
  Company Number: US-GLAXOSMITHKLINE-A0943220A

PATIENT
  Age: 37 Year
  Sex: Male
  Weight: 95.5 kg

DRUGS (3)
  1. ACYCLOVIR [Suspect]
     Indication: CONJUNCTIVITIS
     Dosage: 800MGD per day
     Route: 065
     Dates: start: 2008
  2. ZOLOFT [Suspect]
     Indication: ANXIETY
     Dosage: 100MG Per day
     Dates: start: 2011
  3. NONE [Concomitant]

REACTIONS (5)
  - Insomnia [Not Recovered/Not Resolved]
  - Night sweats [Not Recovered/Not Resolved]
  - Fatigue [Not Recovered/Not Resolved]
  - Drug interaction [Unknown]
  - Blood cholesterol increased [Unknown]
